FAERS Safety Report 5063876-3 (Version None)
Quarter: 2006Q3

REPORT INFORMATION
  Report Type: 
  Country: None (occurrence: None)
  Receive Date: 20060727
  Receipt Date: 20050126
  Transmission Date: 20061208
  Serious: Yes (Death)
  Sender: FDA-Public Use
  Company Number: US-ABBOTT-05P-163-0288340-00

PATIENT
  Sex: Female

DRUGS (2)
  1. RITONAVIR SOFT GELATIN CAPSULES (LEAD-IN) [Suspect]
     Indication: HIV INFECTION
  2. TIPRANAVIR [Concomitant]
     Indication: HIV INFECTION

REACTIONS (1)
  - DEATH [None]
